FAERS Safety Report 6985366-0 (Version None)
Quarter: 2010Q3

REPORT INFORMATION
  Report Type: 
  Country: None (occurrence: None)
  Receive Date: 20100915
  Receipt Date: 20100820
  Transmission Date: 20110219
  Serious: No
  Sender: FDA-Public Use
  Company Number: US-PFIZER INC-2010105638

PATIENT
  Age: 60 Year
  Sex: Female

DRUGS (5)
  1. NEURONTIN [Suspect]
     Indication: DIABETIC NEUROPATHY
     Dosage: UNK MG, UNK
     Route: 048
     Dates: start: 20100101
  2. KLONOPIN [Concomitant]
     Indication: ANXIETY
     Dosage: UNK
  3. BUSPAR [Concomitant]
     Indication: DEPRESSION
     Dosage: UNK
  4. WELLBUTRIN [Concomitant]
     Dosage: UNK
  5. PLAVIX [Concomitant]
     Dosage: UNK

REACTIONS (1)
  - DRUG INEFFECTIVE [None]
